FAERS Safety Report 6100075-8 (Version None)
Quarter: 2009Q1

REPORT INFORMATION
  Report Type: 
  Country: None (occurrence: None)
  Receive Date: 20090303
  Receipt Date: 20090302
  Transmission Date: 20090719
  Serious: Yes (Other)
  Sender: FDA-Public Use
  Company Number: B0562170A

PATIENT
  Age: 60 Year
  Sex: Male

DRUGS (2)
  1. DILATREND [Suspect]
     Indication: ARRHYTHMIA SUPRAVENTRICULAR
     Dosage: 24.5MG PER DAY
     Route: 048
  2. TAMBOCOR [Suspect]
     Indication: ARRHYTHMIA SUPRAVENTRICULAR
     Dosage: 25MG TWICE PER DAY
     Route: 048
     Dates: start: 20081103, end: 20081104

REACTIONS (8)
  - ATRIOVENTRICULAR BLOCK [None]
  - BRADYCARDIA [None]
  - DIZZINESS [None]
  - DRUG INTERACTION [None]
  - FEELING ABNORMAL [None]
  - LOSS OF CONSCIOUSNESS [None]
  - NAUSEA [None]
  - SYNCOPE [None]
